FAERS Safety Report 4795269-8 (Version None)
Quarter: 2005Q4

REPORT INFORMATION
  Report Type: 
  Country: None (occurrence: None)
  Receive Date: 20051006
  Receipt Date: 20050921
  Transmission Date: 20060501
  Serious: Yes (Life-Threatening, Hospitalization)
  Sender: FDA-Public Use
  Company Number: 2005001853

PATIENT

DRUGS (2)
  1. ERLOTINIB HCL (TABLET) (ERLOTINIB HCL) [Suspect]
     Indication: NEOPLASM
     Dosage: ORAL
     Route: 048
     Dates: start: 20050815
  2. ERLOTINIB HCL (TABLET) (ERLOTINIB HCL) [Suspect]
     Indication: NEOPLASM MALIGNANT
     Dosage: ORAL
     Route: 048
     Dates: start: 20050815

REACTIONS (3)
  - DRUG TOXICITY [None]
  - PERICARDIAL EFFUSION [None]
  - PLEURAL EFFUSION [None]
